FAERS Safety Report 12722292 (Version 1)
Quarter: 2016Q3

REPORT INFORMATION
  Report Type: Spontaneous
  Country: CH (occurrence: CH)
  Receive Date: 20160907
  Receipt Date: 20160907
  Transmission Date: 20161109
  Serious: Yes (Hospitalization, Other)
  Sender: FDA-Public Use
  Company Number: CH-PFIZER INC-2016412138

PATIENT
  Age: 57 Year
  Sex: Male

DRUGS (8)
  1. DAFALGAN [Suspect]
     Active Substance: ACETAMINOPHEN
     Indication: HEADACHE
     Dosage: 1 G, 4X/DAY (1-1-1-1)
     Route: 048
  2. PLAVIX [Suspect]
     Active Substance: CLOPIDOGREL BISULFATE
     Dosage: 75 MG, 1X/DAY (1-0-0-0)
  3. LYRICA [Suspect]
     Active Substance: PREGABALIN
     Indication: HEADACHE
     Dosage: 150 MG, 2X/DAY (50MG, 3-0-3)
     Route: 048
  4. LYRICA [Suspect]
     Active Substance: PREGABALIN
     Dosage: 50 MG, 2X/DAY (1-0-1-0)
     Route: 048
     Dates: start: 20160815
  5. TRAMAL RETARD [Suspect]
     Active Substance: TRAMADOL
     Indication: HEADACHE
     Dosage: 100 MG, 2X/DAY (1-0-1-0)
     Route: 048
  6. ASPIRIN CARDIO [Suspect]
     Active Substance: ASPIRIN
     Dosage: 100 MG, 1X/DAY (1-0-0-0)
     Route: 048
  7. ATORVASTATIN PFIZER [Concomitant]
     Active Substance: ATORVASTATIN
     Dosage: 20 MG, 1X/DAY (1-0-0-0)
  8. NOVALGIN [Concomitant]
     Active Substance: METAMIZOLE SODIUM
     Dosage: 1000 MG, 4X/DAY

REACTIONS (9)
  - Drug ineffective for unapproved indication [Unknown]
  - Fatigue [Recovering/Resolving]
  - Nausea [Recovering/Resolving]
  - Condition aggravated [Unknown]
  - Dehydration [Unknown]
  - Vomiting [Recovering/Resolving]
  - Nasopharyngeal cancer [Unknown]
  - Headache [Unknown]
  - Gastroenteritis [Unknown]

NARRATIVE: CASE EVENT DATE: 20160815
